FAERS Safety Report 9921640 (Version 2)
Quarter: 2014Q1

REPORT INFORMATION
  Report Type: Spontaneous
  Country: GB (occurrence: GB)
  Receive Date: 20140225
  Receipt Date: 20140331
  Transmission Date: 20141002
  Serious: Yes (Life-Threatening)
  Sender: FDA-Public Use
  Company Number: GB-ELI_LILLY_AND_COMPANY-GB201402006441

PATIENT
  Age: 68 Year
  Sex: Female
  Weight: 73.2 kg

DRUGS (5)
  1. PEMETREXED [Suspect]
     Indication: MESOTHELIOMA
     Dosage: 850 MG, EVERY 3 WEEKS
     Route: 042
     Dates: start: 20140120
  2. CISPLATIN [Concomitant]
     Route: 042
  3. VITAMIN B12                        /00056201/ [Concomitant]
     Dosage: 1 MG, EVERY 9 WEEKS
     Route: 030
     Dates: start: 20140110
  4. FOLIC ACID [Concomitant]
     Dosage: 400 UG, OTHER
     Route: 048
     Dates: start: 20140110
  5. FOLIC ACID [Concomitant]
     Dosage: 5 MG, UNK

REACTIONS (6)
  - Neutropenia [Recovered/Resolved]
  - Cellulitis [Recovered/Resolved]
  - Blood folate decreased [Recovered/Resolved]
  - Fatigue [Recovered/Resolved]
  - Nausea [Recovered/Resolved]
  - Fluid retention [Recovered/Resolved]
